FAERS Safety Report 4705926-7 (Version None)
Quarter: 2005Q2

REPORT INFORMATION
  Report Type: 
  Country: None (occurrence: None)
  Receive Date: 20050629
  Receipt Date: 20040825
  Transmission Date: 20051028
  Serious: Yes (Hospitalization)
  Sender: FDA-Public Use
  Company Number: 2004-119725-NL

PATIENT
  Age: 57 Year
  Sex: Female
  Weight: 76.8 kg

DRUGS (2)
  1. REMERON [Suspect]
     Indication: DEPRESSION
     Dates: start: 20040609, end: 20040609
  2. EFFEXOR [Suspect]
     Indication: DEPRESSION
     Dosage: 75 MG DAILY
     Dates: start: 20030701, end: 20040609

REACTIONS (8)
  - CATATONIA [None]
  - COLOUR BLINDNESS [None]
  - DEPRESSED LEVEL OF CONSCIOUSNESS [None]
  - DRUG INTERACTION [None]
  - DRUG WITHDRAWAL SYNDROME [None]
  - REFUSAL OF TREATMENT BY PATIENT [None]
  - SPEECH DISORDER [None]
  - TREMOR [None]
